FAERS Safety Report 17267054 (Version 1)
Quarter: 2019Q4

REPORT INFORMATION
  Report Type: Spontaneous
  Country: US (occurrence: US)
  Receive Date: 20191220
  Receipt Date: 20191220
  Transmission Date: 20200122
  Serious: No
  Sender: FDA-Public Use
  Company Number: None

PATIENT
  Age: 15 Year
  Sex: Male

DRUGS (1)
  1. TRIKAFTA [Suspect]
     Active Substance: ELEXACAFTOR\IVACAFTOR\TEZACAFTOR
     Indication: CYSTIC FIBROSIS
     Dosage: DOSE AMOUNT: 100/75/50MG/150MG?          OTHER FREQUENCY:QAM +QPM;?
     Route: 048
     Dates: start: 20191126

REACTIONS (3)
  - Abdominal pain [None]
  - Diarrhoea [None]
  - Flatulence [None]
